FAERS Safety Report 8311748-0 (Version None)
Quarter: 2012Q1

REPORT INFORMATION
  Report Type: 
  Country: None (occurrence: None)
  Receive Date: 20120315
  Receipt Date: 20110613
  Transmission Date: 20120608
  Serious: No
  Sender: FDA-Public Use
  Company Number: PHHY2011US52621

PATIENT
  Age: 61 Year
  Sex: Female

DRUGS (9)
  1. LORAZEPAM [Concomitant]
  2. EFFEXOR [Concomitant]
  3. DAYPRO [Concomitant]
  4. GILENYA [Suspect]
     Dosage: UNK
     Dates: start: 20110330
  5. ARTHROTEC [Concomitant]
  6. CELEBREX [Concomitant]
  7. CODEINE SULFATE [Concomitant]
  8. BEXTRA [Concomitant]
  9. IBUPROFEN [Concomitant]

REACTIONS (2)
  - AMNESIA [None]
  - FATIGUE [None]
